FAERS Safety Report 5755417-X (Version None)
Quarter: 2008Q2

REPORT INFORMATION
  Report Type: 
  Country: None (occurrence: None)
  Receive Date: 20080529
  Receipt Date: 20080529
  Transmission Date: 20081010
  Serious: No
  Sender: FDA-Public Use
  Company Number: None

PATIENT
  Age: 22 Year
  Sex: Female
  Weight: 90.7194 kg

DRUGS (1)
  1. CHANTIX [Suspect]
     Indication: SMOKING CESSATION THERAPY
     Dates: start: 20080416, end: 20080527

REACTIONS (11)
  - APATHY [None]
  - BALANCE DISORDER [None]
  - CLUMSINESS [None]
  - FEELING ABNORMAL [None]
  - HYPERHIDROSIS [None]
  - MENTAL DISORDER [None]
  - SPEECH DISORDER [None]
  - STOMACH DISCOMFORT [None]
  - SUICIDAL IDEATION [None]
  - TREMOR [None]
  - VISUAL DISTURBANCE [None]
